FAERS Safety Report 4971035-5 (Version None)
Quarter: 2006Q2

REPORT INFORMATION
  Report Type: 
  Country: None (occurrence: None)
  Receive Date: 20060412
  Receipt Date: 20060403
  Transmission Date: 20061013
  Serious: Yes (Other)
  Sender: FDA-Public Use
  Company Number: KR-JNJFOC-20060401108

PATIENT
  Sex: Female
  Weight: 36 kg

DRUGS (4)
  1. GALANTAMINE HYDROBROMIDE [Suspect]
     Indication: DEMENTIA ALZHEIMER'S TYPE
     Route: 048
  2. VITAMIN E [Concomitant]
  3. TANAMIN [Concomitant]
  4. TRAZODONE HCL [Concomitant]

REACTIONS (1)
  - PNEUMONIA [None]
